FAERS Safety Report 8310375-9 (Version None)
Quarter: 2012Q2

REPORT INFORMATION
  Report Type: 
  Country: None (occurrence: None)
  Receive Date: 20120425
  Receipt Date: 20120420
  Transmission Date: 20120825
  Serious: No
  Sender: FDA-Public Use
  Company Number: US-BAYER-2012-039916

PATIENT
  Age: 83 Year
  Sex: Female
  Weight: 73 kg

DRUGS (3)
  1. THYROID [Concomitant]
  2. ALEVE (CAPLET) [Suspect]
     Dosage: 1-2 TAB TWICE DAILY
     Route: 048
     Dates: start: 20120125
  3. NEXIUM [Concomitant]

REACTIONS (1)
  - DIARRHOEA [None]
